FAERS Safety Report 13153347 (Version 1)
Quarter: 2017Q1

REPORT INFORMATION
  Report Type: Spontaneous
  Country: US (occurrence: US)
  Receive Date: 20170125
  Receipt Date: 20170125
  Transmission Date: 20170428
  Serious: No
  Sender: FDA-Public Use
  Company Number: None

PATIENT
  Sex: Male
  Weight: 70.82 kg

DRUGS (4)
  1. INTUNIV GENERIC 4 MG [Suspect]
     Active Substance: GUANFACINE HYDROCHLORIDE
     Indication: ATTENTION DEFICIT/HYPERACTIVITY DISORDER
     Route: 048
     Dates: start: 2011, end: 2017
  2. INTUNIV GENERIC 4 MG [Suspect]
     Active Substance: GUANFACINE HYDROCHLORIDE
     Indication: PRODUCT USED FOR UNKNOWN INDICATION
     Route: 048
     Dates: start: 2011, end: 2017
  3. DEPAKOTE [Concomitant]
     Active Substance: DIVALPROEX SODIUM
  4. EFFEXOR XR [Concomitant]
     Active Substance: VENLAFAXINE HYDROCHLORIDE

REACTIONS (6)
  - Aggression [None]
  - Mood altered [None]
  - Product substitution issue [None]
  - Poor quality sleep [None]
  - Disturbance in attention [None]
  - Condition aggravated [None]
